FAERS Safety Report 22644064 (Version 1)
Quarter: 2023Q2

REPORT INFORMATION
  Report Type: Spontaneous
  Country: US (occurrence: US)
  Receive Date: 20230627
  Receipt Date: 20230627
  Transmission Date: 20230721
  Serious: No
  Sender: FDA-Public Use
  Company Number: US-JNJFOC-20230639124

PATIENT

DRUGS (1)
  1. ZYRTEC [Suspect]
     Active Substance: CETIRIZINE HYDROCHLORIDE
     Indication: Urticaria
     Dosage: MORE THAN TWICE IN 24 HOURS
     Route: 065

REACTIONS (3)
  - Urticaria [Unknown]
  - Product use in unapproved indication [Unknown]
  - Overdose [Unknown]
